FAERS Safety Report 19652817 (Version 10)
Quarter: 2022Q2

REPORT INFORMATION
  Report Type: Report from Study
  Country: US (occurrence: None)
  Receive Date: 20210803
  Receipt Date: 20220625
  Transmission Date: 20220721
  Serious: Yes (Hospitalization)
  Sender: FDA-Public Use
  Company Number: US-ROCHE-2875673

PATIENT
  Age: 74 Year
  Sex: Female
  Weight: 200 kg

DRUGS (22)
  1. RANIBIZUMAB [Suspect]
     Active Substance: RANIBIZUMAB
     Indication: Diabetic retinal oedema
     Dosage: START DATE OF MOST RECENT DOSE OF STUDY DRUG PRIOR TO AE: 27/MAY/2021?DOSE LAST STUDY DRUG ADMIN PRI
     Route: 050
     Dates: start: 20210429
  2. RANIBIZUMAB [Concomitant]
     Active Substance: RANIBIZUMAB
     Dosage: START DATE OF MOST RECENT DOSE OF STUDY DRUG PRIOR TO AE: 27/MAY/2021?DOSE LAST STUDY DRUG ADMIN PRI
     Route: 050
     Dates: start: 20210527
  3. ASPIRIN [Concomitant]
     Active Substance: ASPIRIN
     Indication: Hypertension
     Dosage: 81 CAPSULE
     Route: 048
     Dates: start: 20130305
  4. GLIPIZIDE [Concomitant]
     Active Substance: GLIPIZIDE
     Indication: Diabetes mellitus
     Dosage: 10 CAPSULE
     Route: 048
     Dates: start: 20210315
  5. AMLODIPINE [Concomitant]
     Active Substance: AMLODIPINE BESYLATE
     Indication: Hypertension
     Dosage: 10 CAPSULE
     Route: 048
     Dates: start: 2018
  6. LISINOPRIL [Concomitant]
     Active Substance: LISINOPRIL
     Indication: Hypertension
     Dosage: 40 CAPSULE
     Route: 048
     Dates: start: 2010, end: 20211216
  7. LISINOPRIL [Concomitant]
     Active Substance: LISINOPRIL
     Route: 048
     Dates: start: 20211217
  8. LOVASTATIN [Concomitant]
     Active Substance: LOVASTATIN
     Indication: Hyperlipidaemia
     Dosage: 20 CAPSULE
     Route: 048
     Dates: start: 2010
  9. CARVEDILOL [Concomitant]
     Active Substance: CARVEDILOL
     Indication: Cardiac failure
     Dosage: 3.125 CAPSULE
     Route: 048
     Dates: start: 2017, end: 20210708
  10. CARVEDILOL [Concomitant]
     Active Substance: CARVEDILOL
     Indication: Hypertension
     Dosage: 12.5 MG/ML
     Route: 048
     Dates: start: 20210109
  11. INSULIN DEGLUDEC [Concomitant]
     Active Substance: INSULIN DEGLUDEC
     Indication: Type 2 diabetes mellitus
     Dosage: 46 U
     Route: 058
     Dates: start: 20180525, end: 20210615
  12. INSULIN DEGLUDEC [Concomitant]
     Active Substance: INSULIN DEGLUDEC
     Indication: Type 2 diabetes mellitus
     Dosage: 55 U
     Route: 058
     Dates: start: 20210615
  13. VISICLEAR [Concomitant]
     Route: 048
     Dates: start: 202105
  14. KETOROLAC TROMETHAMINE [Concomitant]
     Active Substance: KETOROLAC TROMETHAMINE
     Indication: Back pain
     Dosage: 30 OTHER
     Route: 042
     Dates: start: 20210615, end: 20210615
  15. METOCLOPRAMIDE HYDROCHLORIDE [Concomitant]
     Active Substance: METOCLOPRAMIDE HYDROCHLORIDE
     Indication: Gastrooesophageal reflux disease
     Dosage: 10 OTHER
     Route: 042
     Dates: start: 20210615, end: 20210615
  16. TRIAMCINOLONE [Concomitant]
     Active Substance: TRIAMCINOLONE
     Indication: Fungal infection
     Route: 061
     Dates: start: 20210615
  17. CLOTRIMAZOLE [Concomitant]
     Active Substance: CLOTRIMAZOLE
     Indication: Fungal infection
     Route: 061
     Dates: start: 20210615
  18. NYSTATIN [Concomitant]
     Active Substance: NYSTATIN
     Indication: Skin candida
     Route: 061
     Dates: start: 20210722
  19. FLUCONAZOLE [Concomitant]
     Active Substance: FLUCONAZOLE
     Indication: Candida infection
     Route: 048
     Dates: start: 20210315
  20. FUROSEMIDE [Concomitant]
     Active Substance: FUROSEMIDE
     Indication: Hypertension
     Route: 048
     Dates: start: 20210708
  21. LEVOTHYROXINE SODIUM [Concomitant]
     Active Substance: LEVOTHYROXINE SODIUM
     Indication: Hypothyroidism
     Route: 048
     Dates: start: 20220317
  22. BENZONATATE [Concomitant]
     Active Substance: BENZONATATE
     Indication: Bronchitis
     Dosage: 0.1 GRAIN
     Route: 048
     Dates: start: 20220616

REACTIONS (2)
  - Transient ischaemic attack [Recovered/Resolved]
  - Sciatica [Not Recovered/Not Resolved]

NARRATIVE: CASE EVENT DATE: 20210615
